FAERS Safety Report 7897662-3 (Version None)
Quarter: 2011Q4

REPORT INFORMATION
  Report Type: 
  Country: None (occurrence: None)
  Receive Date: 20111107
  Receipt Date: 20111024
  Transmission Date: 20120403
  Serious: Yes (Hospitalization)
  Sender: FDA-Public Use
  Company Number: DE-CELGENEUS-062-21880-11093544

PATIENT
  Age: 87 Year
  Sex: Female
  Weight: 48 kg

DRUGS (5)
  1. AMLODIPINE [Concomitant]
     Dosage: 5 MILLIGRAM
     Route: 048
  2. DEXAMETHASONE [Suspect]
     Indication: MULTIPLE MYELOMA
     Dosage: 40 MILLIGRAM
     Route: 048
     Dates: start: 20110906, end: 20110928
  3. REVLIMID [Suspect]
     Indication: MULTIPLE MYELOMA
     Dosage: 25 MILLIGRAM
     Route: 048
     Dates: start: 20110906, end: 20110927
  4. BISOPROLOL [Concomitant]
     Dosage: 2.5 MILLIGRAM
     Route: 048
  5. RAMIPRIL [Concomitant]
     Dosage: 5 MILLIGRAM
     Route: 048

REACTIONS (5)
  - VISION BLURRED [None]
  - DIZZINESS [None]
  - SOMNOLENCE [None]
  - ATAXIA [None]
  - VERTIGO [None]
